FAERS Safety Report 18983153 (Version 3)
Quarter: 2021Q3

REPORT INFORMATION
  Report Type: Report from Study
  Country: US (occurrence: US)
  Receive Date: 20210308
  Receipt Date: 20210723
  Transmission Date: 20211014
  Serious: Yes (Death, Hospitalization)
  Sender: FDA-Public Use
  Company Number: US-EXELIXIS-CABO-21038119

PATIENT
  Age: 41 Year
  Sex: Male
  Weight: 72.56 kg

DRUGS (20)
  1. VITAMIN E [Concomitant]
     Active Substance: .ALPHA.-TOCOPHEROL
  2. PANTOPRAZOLE SODIUM. [Concomitant]
     Active Substance: PANTOPRAZOLE SODIUM
  3. SPIRONOLACTONE. [Concomitant]
     Active Substance: SPIRONOLACTONE
  4. VITAMIN A AND D [Concomitant]
     Active Substance: LANOLIN\PETROLATUM
  5. QINLOCK [Concomitant]
     Active Substance: RIPRETINIB
     Dosage: UNK
  6. BUMETANIDE. [Concomitant]
     Active Substance: BUMETANIDE
  7. DAILY VITE [Concomitant]
     Active Substance: VITAMINS
  8. CABOMETYX [Suspect]
     Active Substance: CABOZANTINIB S-MALATE
     Indication: GASTROINTESTINAL STROMAL TUMOUR
     Dosage: 40 MG, QD
     Route: 048
     Dates: start: 20210225
  9. MORPHINE SULFATE. [Concomitant]
     Active Substance: MORPHINE SULFATE
  10. FAMOTIDINE. [Concomitant]
     Active Substance: FAMOTIDINE
  11. VITAMIN B12 [Concomitant]
     Active Substance: CYANOCOBALAMIN
     Dosage: UNK
  12. VITAMIN A [Concomitant]
     Active Substance: VITAMIN A
  13. VITAMIN D3 [Concomitant]
     Active Substance: CHOLECALCIFEROL
     Dosage: UNK
  14. TURMERIC [Concomitant]
     Active Substance: HERBALS\TURMERIC
  15. HYDROMORPHONE HCL [Concomitant]
     Active Substance: HYDROMORPHONE HYDROCHLORIDE
  16. TORSEMIDE. [Concomitant]
     Active Substance: TORSEMIDE
  17. POTASSIUM CHLORIDE. [Concomitant]
     Active Substance: POTASSIUM CHLORIDE
  18. CABOMETYX [Suspect]
     Active Substance: CABOZANTINIB S-MALATE
     Indication: ILLNESS
     Dosage: 40 MG, QD
     Route: 048
  19. VITAMIN C [Concomitant]
     Active Substance: ASCORBIC ACID
  20. MEGESTROL ACETATE. [Concomitant]
     Active Substance: MEGESTROL ACETATE

REACTIONS (7)
  - Balance disorder [Unknown]
  - Off label use [Unknown]
  - Malaise [Unknown]
  - Malignant neoplasm progression [Unknown]
  - Death [Fatal]
  - Loss of personal independence in daily activities [Unknown]
  - Product dose omission issue [Unknown]

NARRATIVE: CASE EVENT DATE: 20210619
